FAERS Safety Report 6128714-6 (Version None)
Quarter: 2009Q1

REPORT INFORMATION
  Report Type: 
  Country: None (occurrence: None)
  Receive Date: 20090323
  Receipt Date: 20090309
  Transmission Date: 20090719
  Serious: No
  Sender: FDA-Public Use
  Company Number: JP-PFIZER INC-2008158754

PATIENT

DRUGS (3)
  1. ZITHROMAX [Suspect]
     Route: 048
  2. ACDEAM [Suspect]
     Route: 048
  3. MUCODYNE [Concomitant]
     Route: 048

REACTIONS (1)
  - HYPOTHERMIA [None]
